FAERS Safety Report 5492852-1 (Version None)
Quarter: 2007Q4

REPORT INFORMATION
  Report Type: 
  Country: None (occurrence: None)
  Receive Date: 20071023
  Receipt Date: 20070123
  Transmission Date: 20080405
  Serious: No
  Sender: FDA-Public Use
  Company Number: US-BRISTOL-MYERS SQUIBB COMPANY-13653779

PATIENT
  Age: 39 Year
  Sex: Female
  Weight: 63 kg

DRUGS (6)
  1. BUSPAR [Suspect]
     Indication: ANXIETY
     Dosage: INTIAL DOSAGE 45MG/QD 14-APR-2005 60 MG/QD 08-MAY-2005 90 MG QD  90 MG QD 05-JAN-2007
     Dates: start: 20050414
  2. LAMICTAL [Concomitant]
  3. TRILEPTAL [Concomitant]
  4. CLONAZEPAM [Concomitant]
  5. WELLBUTRIN SR [Concomitant]
  6. ADDERALL 20 [Concomitant]

REACTIONS (4)
  - DRY MOUTH [None]
  - DYSARTHRIA [None]
  - GAIT DISTURBANCE [None]
  - HEADACHE [None]
